FAERS Safety Report 4357531-2 (Version None)
Quarter: 2004Q2

REPORT INFORMATION
  Report Type: 
  Country: None (occurrence: None)
  Receive Date: 20040506
  Receipt Date: 20040430
  Transmission Date: 20050107
  Serious: Yes (Hospitalization)
  Sender: FDA-Public Use
  Company Number: 2003185170US

PATIENT
  Age: 66 Year
  Sex: Female
  Weight: 72 kg

DRUGS (2)
  1. ELLENCE [Suspect]
     Indication: MESOTHELIOMA MALIGNANT
     Dosage: 91 MG, D1, EVERY 21 DAYS, IV
     Route: 042
     Dates: start: 20031002, end: 20031023
  2. COMPARATOR-GEMCITABINE (GEMCITABINE) INJECTION [Suspect]
     Indication: MESOTHELIOMA MALIGNANT
     Dosage: 750 MG/M2, D1+D8, EVERY 21 DAYS, IV
     Route: 042
     Dates: start: 20031002, end: 20031030

REACTIONS (11)
  - ANOREXIA [None]
  - ATAXIA [None]
  - BALANCE DISORDER [None]
  - DYSPNOEA [None]
  - FATIGUE [None]
  - LETHARGY [None]
  - MALAISE [None]
  - MARKEDLY REDUCED DIETARY INTAKE [None]
  - NEUTROPENIA [None]
  - PAIN [None]
  - URINARY TRACT INFECTION [None]
